FAERS Safety Report 6340908-3 (Version None)
Quarter: 2009Q3

REPORT INFORMATION
  Report Type: 
  Country: None (occurrence: None)
  Receive Date: 20090904
  Receipt Date: 20090826
  Transmission Date: 20100115
  Serious: Yes (Hospitalization)
  Sender: FDA-Public Use
  Company Number: JP-BAYER-200913070BYL

PATIENT
  Age: 83 Year
  Sex: Male

DRUGS (2)
  1. ASPIRIN [Suspect]
     Indication: CEREBRAL INFARCTION
     Route: 048
  2. LANSOPRAZOLE [Suspect]
     Indication: DRUG USE FOR UNKNOWN INDICATION
     Route: 048

REACTIONS (3)
  - COLITIS COLLAGENOUS [None]
  - DIARRHOEA [None]
  - GASTRIC ULCER HAEMORRHAGE [None]
